FAERS Safety Report 23378730 (Version 1)
Quarter: 2024Q1

REPORT INFORMATION
  Report Type: Spontaneous
  Country: FR (occurrence: FR)
  Receive Date: 20240108
  Receipt Date: 20240108
  Transmission Date: 20240410
  Serious: Yes (Hospitalization)
  Sender: FDA-Public Use
  Company Number: FR-AMGEN-FRASP2023233839

PATIENT
  Age: 40 Year
  Sex: Female
  Weight: 90 kg

DRUGS (6)
  1. ARANESP [Suspect]
     Active Substance: DARBEPOETIN ALFA
     Indication: Anaemia
     Dosage: 80 MICROGRAM, QWK
     Route: 065
     Dates: start: 20210309
  2. ATENOLOL [Suspect]
     Active Substance: ATENOLOL
     Indication: Hypertension
     Dosage: 100 MILLIGRAM, QD
     Route: 065
     Dates: start: 20210309, end: 20211012
  3. KARDEGIC [Suspect]
     Active Substance: ASPIRIN DL-LYSINE
     Indication: Product used for unknown indication
     Dosage: 160 MILLIGRAM, QD, MOST RECENT DOSE ON 22/OCT/2021
     Route: 065
     Dates: start: 20210309
  4. ATARAX [Suspect]
     Active Substance: HYDROXYZINE HYDROCHLORIDE
     Indication: Pruritus
     Dosage: MOST RECENT DOSE ON 22/OCT/2021
     Route: 065
     Dates: start: 20210309
  5. TACROLIMUS [Suspect]
     Active Substance: TACROLIMUS
     Indication: Renal transplant
     Dosage: 7 MILLIGRAM, QD, MOST RECENT DOSE ON 22/OCT/2021
     Route: 065
     Dates: start: 20210309
  6. AZATHIOPRINE SODIUM [Suspect]
     Active Substance: AZATHIOPRINE SODIUM
     Indication: Renal transplant
     Dosage: 75 MILLIGRAM, QD, MOST RECENT DOSE ON 22/OCT/2021
     Route: 065
     Dates: start: 20210309

REACTIONS (2)
  - Premature delivery [Recovered/Resolved]
  - Maternal exposure during pregnancy [Recovered/Resolved]

NARRATIVE: CASE EVENT DATE: 20211022
